FAERS Safety Report 18227380 (Version 1)
Quarter: 2020Q3

REPORT INFORMATION
  Report Type: Spontaneous
  Country: US (occurrence: US)
  Receive Date: 20200903
  Receipt Date: 20200903
  Transmission Date: 20201103
  Serious: No
  Sender: FDA-Public Use
  Company Number: US-SHIRE-US202028349

PATIENT
  Age: 42 Year
  Sex: Male

DRUGS (1)
  1. CUVITRU [Suspect]
     Active Substance: HUMAN IMMUNOGLOBULIN G
     Indication: PRIMARY IMMUNODEFICIENCY SYNDROME
     Dosage: UNK
     Route: 058
     Dates: start: 20200828

REACTIONS (3)
  - Incorrect drug administration rate [Unknown]
  - Nausea [Recovered/Resolved]
  - Device dispensing error [Unknown]

NARRATIVE: CASE EVENT DATE: 20200828
